FAERS Safety Report 4500111-6 (Version None)
Quarter: 2004Q4

REPORT INFORMATION
  Report Type: 
  Country: None (occurrence: None)
  Receive Date: 20041112
  Receipt Date: 20041103
  Transmission Date: 20050328
  Serious: Yes (Disabling, Other)
  Sender: FDA-Public Use
  Company Number: GB-GLAXOSMITHKLINE-B0350439A

PATIENT
  Age: 42 Year
  Sex: Female

DRUGS (4)
  1. PAROXETINE [Suspect]
     Indication: DEPRESSION
     Dosage: 40MG PER DAY
     Route: 048
     Dates: start: 19990604, end: 20041013
  2. THYROXINE [Concomitant]
     Indication: HYPOTHYROIDISM
     Dosage: 100MCG PER DAY
     Route: 048
  3. THIORIDAZINE [Concomitant]
     Dosage: 25MG UNKNOWN
     Route: 048
  4. LITHIUM CARBONATE [Concomitant]
     Dosage: 1200MG PER DAY
     Route: 048

REACTIONS (1)
  - SUICIDAL IDEATION [None]
